FAERS Safety Report 7624703-0 (Version None)
Quarter: 2011Q3

REPORT INFORMATION
  Report Type: 
  Country: None (occurrence: None)
  Receive Date: 20110720
  Receipt Date: 20110710
  Transmission Date: 20111222
  Serious: Yes (Other)
  Sender: FDA-Public Use
  Company Number: US-CELGENEUS-163-AB007-11071145

PATIENT
  Weight: 106 kg

DRUGS (30)
  1. GEMCITABINE [Suspect]
     Dosage: 1000 MILLIGRAM/SQ. METER
     Route: 065
     Dates: start: 20110223
  2. METFORMIN HCL [Concomitant]
     Route: 048
     Dates: start: 20110408
  3. MSM [Concomitant]
     Route: 048
     Dates: start: 20110511
  4. KYTRIL [Concomitant]
     Indication: NAUSEA
     Route: 051
     Dates: start: 20110516, end: 20110516
  5. VITAMIN B-12 [Concomitant]
     Indication: VITAMIN B12 DEFICIENCY
     Route: 048
  6. METOCLOPRAMIDE [Concomitant]
     Route: 048
  7. DIFLUCAN [Concomitant]
  8. DEXAMETHASONE [Concomitant]
     Indication: NAUSEA
     Route: 051
     Dates: start: 20110516, end: 20110516
  9. DEXAMETHASONE [Concomitant]
     Route: 051
     Dates: start: 20110608, end: 20110608
  10. LOMOTIL [Concomitant]
     Route: 048
     Dates: start: 20110516
  11. MELOXICAM [Concomitant]
     Indication: ARTHRITIS
     Route: 048
  12. BENADRYL [Concomitant]
     Indication: PROPHYLAXIS
     Route: 048
     Dates: start: 20110406
  13. CREON [Concomitant]
     Route: 048
     Dates: start: 20110520, end: 20110601
  14. METHYLPREDNISOLONE ACETATE [Concomitant]
     Indication: FATIGUE
     Route: 048
     Dates: start: 20110601
  15. COUMADIN [Concomitant]
     Route: 048
     Dates: start: 20110525
  16. ATIVAN [Concomitant]
     Indication: NAUSEA
     Route: 051
     Dates: start: 20110516, end: 20110516
  17. PREDNISONE [Concomitant]
     Indication: FATIGUE
     Route: 048
     Dates: start: 20110601
  18. LOVENOX [Concomitant]
     Route: 058
     Dates: start: 20110525, end: 20110531
  19. BYSTOLIC [Concomitant]
     Indication: HYPERTENSION
     Route: 048
     Dates: start: 20100101
  20. VERAMYST [Concomitant]
     Indication: SEASONAL ALLERGY
     Route: 048
  21. SANDOSTATIN [Concomitant]
     Route: 051
     Dates: start: 20110516, end: 20110516
  22. ABRAXANE [Suspect]
     Dosage: 125 MILLIGRAM/SQ. METER
     Route: 051
     Dates: start: 20110223
  23. CENESTIN [Concomitant]
     Indication: PROPHYLAXIS
     Route: 048
     Dates: start: 19740101
  24. FUROSEMIDE [Concomitant]
     Indication: PROPHYLAXIS
     Route: 048
  25. DIFLUCAN [Concomitant]
     Indication: RASH
     Route: 048
     Dates: start: 20110426, end: 20110502
  26. ASPIRIN [Concomitant]
     Indication: PROPHYLAXIS
     Route: 048
  27. BYSTOLIC [Concomitant]
     Indication: TACHYCARDIA
  28. SODIUM CHLORIDE [Concomitant]
     Indication: DEHYDRATION
     Route: 048
     Dates: start: 20110516, end: 20110516
  29. CITALOPRAM HYDROBROMIDE [Concomitant]
     Indication: ANXIETY
     Route: 048
  30. SODIUM CHLORIDE [Concomitant]
     Route: 048
     Dates: start: 20110608, end: 20110608

REACTIONS (1)
  - UROSEPSIS [None]
